FAERS Safety Report 7316901-0 (Version None)
Quarter: 2011Q1

REPORT INFORMATION
  Report Type: 
  Country: None (occurrence: None)
  Receive Date: 20110226
  Receipt Date: 20100817
  Transmission Date: 20110831
  Serious: No
  Sender: FDA-Public Use
  Company Number: US-ALLERGAN-200219017

PATIENT
  Age: 34 Year
  Sex: Female
  Weight: 49.091 kg

DRUGS (2)
  1. BOTOXA? [Suspect]
     Indication: FACIAL SPASM
     Dosage: 8 UNITS, SINGLE
     Route: 030
     Dates: start: 20020919, end: 20020918
  2. BOTOXA? [Suspect]
     Indication: MUSCLE SPASMS
     Dosage: 15 UNITS, SINGLE
     Route: 030
     Dates: start: 20021216, end: 20021216

REACTIONS (7)
  - MUSCULAR WEAKNESS [None]
  - EYELID PTOSIS [None]
  - ABNORMAL SENSATION IN EYE [None]
  - LAGOPHTHALMOS [None]
  - VISUAL IMPAIRMENT [None]
  - EYE PAIN [None]
  - OCULAR HYPERAEMIA [None]
